FAERS Safety Report 19115632 (Version 1)
Quarter: 2021Q2

REPORT INFORMATION
  Report Type: Spontaneous
  Country: CN (occurrence: CN)
  Receive Date: 20210409
  Receipt Date: 20210409
  Transmission Date: 20210717
  Serious: Yes (Other)
  Sender: FDA-Public Use
  Company Number: CN-PFIZER INC-2021366627

PATIENT
  Age: 70 Year
  Sex: Male

DRUGS (2)
  1. METHYLPREDNISOLONE. [Suspect]
     Active Substance: METHYLPREDNISOLONE
     Indication: PEMPHIGOID
     Route: 048
  2. CYCLOSPORINE. [Suspect]
     Active Substance: CYCLOSPORINE
     Indication: PEMPHIGOID
     Route: 048

REACTIONS (3)
  - Off label use [Unknown]
  - Alternaria infection [Recovered/Resolved]
  - Drug effective for unapproved indication [Unknown]
